FAERS Safety Report 6648563-X (Version None)
Quarter: 2010Q1

REPORT INFORMATION
  Report Type: 
  Country: None (occurrence: None)
  Receive Date: 20100319
  Receipt Date: 20100226
  Transmission Date: 20100710
  Serious: Yes (Hospitalization)
  Sender: FDA-Public Use
  Company Number: CRC-10-047

PATIENT
  Sex: Male

DRUGS (1)
  1. PHENYTOIN SODIUM [Suspect]
     Dosage: 2 CAPS. TWICE A DAY
     Dates: start: 20090706, end: 20100209

REACTIONS (1)
  - THERAPEUTIC AGENT TOXICITY [None]
